FAERS Safety Report 5158422-X (Version None)
Quarter: 2006Q4

REPORT INFORMATION
  Report Type: 
  Country: None (occurrence: None)
  Receive Date: 20061128
  Receipt Date: 20060307
  Transmission Date: 20070319
  Serious: Yes (Hospitalization, Other)
  Sender: FDA-Public Use
  Company Number: HQWYE218608MAR06

PATIENT
  Sex: Male
  Weight: 48 kg

DRUGS (8)
  1. ENBREL [Suspect]
     Indication: RHEUMATOID ARTHRITIS
     Route: 058
     Dates: start: 20060126, end: 20060216
  2. PREDNISOLONE [Suspect]
     Indication: RHEUMATOID ARTHRITIS
     Dosage: UNSPECIFIED DOSE
     Route: 048
     Dates: start: 20050101
  3. MEROPEN [Concomitant]
     Indication: PLEURISY
     Route: 065
     Dates: start: 20051231, end: 20060131
  4. LOXONIN [Concomitant]
     Indication: RHEUMATOID ARTHRITIS
     Dosage: 2DF/DAY
     Route: 048
     Dates: start: 20050101
  5. CYTOTEC [Concomitant]
     Indication: PROPHYLAXIS AGAINST GASTROINTESTINAL ULCER
     Route: 048
     Dates: start: 20050101
  6. VANCOMYCIN [Concomitant]
     Indication: PLEURISY
     Route: 065
     Dates: start: 20051228, end: 20060205
  7. ISCOTIN [Concomitant]
     Route: 048
     Dates: start: 20060209
  8. ADALAT [Concomitant]
     Route: 048
     Dates: start: 20050101

REACTIONS (3)
  - LUNG CONSOLIDATION [None]
  - PLEURAL EFFUSION [None]
  - PNEUMOCYSTIS JIROVECI PNEUMONIA [None]
